FAERS Safety Report 8853640 (Version 2)
Quarter: 2012Q4

REPORT INFORMATION
  Report Type: 
  Country: BR (occurrence: BR)
  Receive Date: 20121023
  Receipt Date: 20121126
  Transmission Date: 20130627
  Serious: Yes (Other)
  Sender: FDA-Public Use
  Company Number: BR-RANBAXY-2012R5-61103

PATIENT
  Age: 0 Year
  Sex: Male
  Weight: 9.5 kg

DRUGS (6)
  1. CEFUROXIME AXETIL [Suspect]
     Indication: OTITIS MEDIA
     Dosage: 2 ml, bid
     Route: 048
     Dates: start: 20121009, end: 20121014
  2. AEROLIN SPRAY [Concomitant]
     Indication: ASTHMA
     Dosage: UNK
     Route: 065
  3. SORINE SPRAY [Concomitant]
     Indication: NASAL DRYNESS
     Dosage: UNK
     Route: 065
  4. PREDSIM [Concomitant]
     Indication: COUGH
     Dosage: 4 ml, qd
     Route: 065
  5. TYLENOL [Concomitant]
     Indication: PAIN
     Dosage: UNK
     Route: 065
  6. TYLENOL [Concomitant]
     Indication: PYREXIA

REACTIONS (9)
  - Hypothermia [Recovered/Resolved]
  - Vomiting [Recovered/Resolved]
  - Vomiting [Recovered/Resolved]
  - Nausea [Recovered/Resolved]
  - Diarrhoea [Recovered/Resolved]
  - Decreased appetite [Recovered/Resolved]
  - Insomnia [Recovered/Resolved]
  - Medication error [Unknown]
  - Medication error [Unknown]
